FAERS Safety Report 6917617-2 (Version None)
Quarter: 2010Q3

REPORT INFORMATION
  Report Type: 
  Country: None (occurrence: None)
  Receive Date: 20100810
  Receipt Date: 20071217
  Transmission Date: 20110219
  Serious: Yes (Hospitalization)
  Sender: FDA-Public Use
  Company Number: US-BAYER-US-2007-039622

PATIENT
  Age: 37 Year
  Sex: Male

DRUGS (1)
  1. BETASERON [Suspect]
     Indication: MULTIPLE SCLEROSIS
     Dosage: TOTAL DAILY DOSE: 8 MIU
     Route: 058
     Dates: start: 20070119

REACTIONS (4)
  - BURNING SENSATION [None]
  - DEPRESSION [None]
  - MENTAL IMPAIRMENT [None]
  - MUSCLE SPASMS [None]
